FAERS Safety Report 9120739 (Version 1)
Quarter: 2013Q1

REPORT INFORMATION
  Report Type: Report from Study
  Country: JP (occurrence: JP)
  Receive Date: 20130226
  Receipt Date: 20130226
  Transmission Date: 20140127
  Serious: Yes (Death, Other)
  Sender: FDA-Public Use
  Company Number: JP-OTSUKA-JP-2012-15239

PATIENT
  Age: 89 None
  Sex: Female

DRUGS (5)
  1. SAMSCA [Suspect]
     Indication: FLUID RETENTION
     Dosage: 15 MG MILLIGRAM(S), QAM
     Route: 048
     Dates: start: 20120404, end: 20120405
  2. ALDACTONE A [Concomitant]
     Indication: CARDIAC FAILURE
     Dosage: 50 MG MILLIGRAM(S), DAILY DOSE
     Route: 048
     Dates: start: 20120331, end: 20120405
  3. INOVAN [Concomitant]
     Indication: CARDIAC FAILURE
     Dosage: 103 MG MILLIGRAM(S), DAILY DOSE
     Route: 042
     Dates: start: 20120402, end: 20120429
  4. DIART [Concomitant]
     Indication: CARDIAC FAILURE
     Dosage: 60 MG MILLIGRAM(S), DAILY DOSE
     Route: 048
     Dates: start: 20120403, end: 20120405
  5. HANP [Concomitant]
     Indication: CARDIAC FAILURE
     Dosage: 1440 MCG, DAILY DOSE
     Route: 042
     Dates: start: 20120403, end: 20120429

REACTIONS (3)
  - Cardiac failure [Fatal]
  - Hypotension [Not Recovered/Not Resolved]
  - Dehydration [Unknown]
